FAERS Safety Report 24939687 (Version 2)
Quarter: 2025Q1

REPORT INFORMATION
  Report Type: Report from Study
  Country: US (occurrence: US)
  Receive Date: 20250207
  Receipt Date: 20250214
  Transmission Date: 20250409
  Serious: Yes (Other)
  Sender: ABBVIE
  Company Number: US-ABBVIE-6116635

PATIENT
  Age: 60 Year
  Sex: Female

DRUGS (9)
  1. HUMIRA [Suspect]
     Active Substance: ADALIMUMAB
     Indication: Hidradenitis
     Dosage: FORM STRENGTH 80MG
     Route: 058
     Dates: start: 20230720
  2. ASPIRIN [Concomitant]
     Active Substance: ASPIRIN
     Indication: Heart rate irregular
  3. METOPROLOL [Concomitant]
     Active Substance: METOPROLOL
     Indication: Hypertension
  4. OXYCODONE [Concomitant]
     Active Substance: OXYCODONE
     Indication: Pain
  5. MOUNJARO [Concomitant]
     Active Substance: TIRZEPATIDE
     Indication: Weight decreased
  6. ZANAFLEX [Concomitant]
     Active Substance: TIZANIDINE HYDROCHLORIDE
     Indication: Muscle spasms
  7. LYRICA [Concomitant]
     Active Substance: PREGABALIN
     Indication: Pain
  8. LISINOPRIL [Concomitant]
     Active Substance: LISINOPRIL
     Indication: Hypertension
  9. TYLENOL [Concomitant]
     Active Substance: ACETAMINOPHEN
     Indication: Pain

REACTIONS (4)
  - Anal fistula [Recovered/Resolved]
  - Haemorrhoids [Not Recovered/Not Resolved]
  - Carbohydrate antigen 27.29 increased [Not Recovered/Not Resolved]
  - Proctalgia [Recovered/Resolved]

NARRATIVE: CASE EVENT DATE: 20240101
